FAERS Safety Report 18609611 (Version 1)
Quarter: 2020Q4

REPORT INFORMATION
  Report Type: Spontaneous
  Country: GB (occurrence: GB)
  Receive Date: 20201214
  Receipt Date: 20201214
  Transmission Date: 20210114
  Serious: Yes (Other)
  Sender: FDA-Public Use
  Company Number: GB-TEVA-2020-GB-1857427

PATIENT
  Age: 61 Year
  Sex: Male
  Weight: 75.5 kg

DRUGS (2)
  1. DOXYCYCLINE. [Suspect]
     Active Substance: DOXYCYCLINE
     Indication: SINUSITIS
     Dosage: 200MG FIRST DAY 100MG SECOND DAY, 100 MG
     Route: 048
     Dates: start: 20201113, end: 20201113
  2. DOXYCYCLINE. [Suspect]
     Active Substance: DOXYCYCLINE
     Dosage: 200MG FIRST DAY 100MG SECOND DAY, 200 MG
     Route: 048
     Dates: start: 20201112, end: 20201112

REACTIONS (4)
  - Sensitive skin [Recovered/Resolved with Sequelae]
  - Pain of skin [Recovered/Resolved with Sequelae]
  - Blister [Recovered/Resolved with Sequelae]
  - Skin burning sensation [Unknown]

NARRATIVE: CASE EVENT DATE: 20201112
